FAERS Safety Report 7934837-9 (Version None)
Quarter: 2011Q4

REPORT INFORMATION
  Report Type: 
  Country: None (occurrence: None)
  Receive Date: 20111122
  Receipt Date: 20111122
  Transmission Date: 20120403
  Serious: Yes (Hospitalization)
  Sender: FDA-Public Use
  Company Number: ZA-BAYER-2011-099377

PATIENT
  Age: 50 Year
  Sex: Male
  Weight: 48.6 kg

DRUGS (5)
  1. RIFAMPICIN [Suspect]
     Indication: PULMONARY TUBERCULOSIS
     Dosage: 600MG DAILY DOSE
     Dates: start: 20110520, end: 20110915
  2. PYRAZINAMIDE [Suspect]
     Indication: PULMONARY TUBERCULOSIS
     Dosage: 1000 MG DAILY DOSE
     Dates: start: 20110520, end: 20110714
  3. MOXIFLOXACIN [Suspect]
     Dosage: 400 MG DAILY DOSE
     Dates: start: 20110520, end: 20110915
  4. ETHAMBUTOL HYDROCHLORIDE [Suspect]
     Indication: PULMONARY TUBERCULOSIS
     Dosage: 800 MG DAILY DOSE
     Dates: start: 20110520, end: 20110714
  5. PLACEBO [Suspect]
     Dosage: UNK
     Dates: start: 20110520

REACTIONS (2)
  - OEDEMA PERIPHERAL [None]
  - DEEP VEIN THROMBOSIS [None]
